FAERS Safety Report 12402425 (Version 1)
Quarter: 2016Q2

REPORT INFORMATION
  Report Type: Spontaneous
  Country: US (occurrence: US)
  Receive Date: 20160525
  Receipt Date: 20160525
  Transmission Date: 20160815
  Serious: No
  Sender: FDA-Public Use
  Company Number: US-PFIZER INC-2016242349

PATIENT
  Age: 63 Year
  Sex: Male
  Weight: 88 kg

DRUGS (5)
  1. LYRICA [Suspect]
     Active Substance: PREGABALIN
     Dosage: 1 DF, DAILY
  2. VITAMIN B12 [Concomitant]
     Active Substance: CYANOCOBALAMIN
     Indication: BURNING SENSATION
     Dosage: 1000 UG, DAILY (500MCG PILLS TAKE 2 BY MOUTH DAY)
     Route: 048
  3. TRAZODONE [Concomitant]
     Active Substance: TRAZODONE HYDROCHLORIDE
     Indication: INSOMNIA
     Dosage: 100 MG, DAILY (100MG ONE TABLET AT NIGHT)
  4. LISINOPRIL. [Concomitant]
     Active Substance: LISINOPRIL
     Indication: BLOOD PRESSURE ABNORMAL
     Dosage: 40 MG, 1X/DAY
     Route: 048
  5. LYRICA [Suspect]
     Active Substance: PREGABALIN
     Indication: NEUROPATHY PERIPHERAL
     Dosage: 2 DF, DAILY
     Route: 048

REACTIONS (3)
  - Burning sensation [Not Recovered/Not Resolved]
  - Drug dose omission [Not Recovered/Not Resolved]
  - Intentional product misuse [Unknown]
